FAERS Safety Report 5076858-2 (Version None)
Quarter: 2006Q3

REPORT INFORMATION
  Report Type: 
  Country: None (occurrence: None)
  Receive Date: 20060807
  Receipt Date: 20060726
  Transmission Date: 20061208
  Serious: Yes (Other)
  Sender: FDA-Public Use
  Company Number: 14439

PATIENT
  Age: 27 Year
  Sex: Male

DRUGS (3)
  1. METOCLOPRAMIDE [Suspect]
     Indication: ENTERAL NUTRITION
     Dosage: 10 MG OTH IV
     Route: 042
  2. DILTIAZEM HCL [Concomitant]
  3. AMIODARONE [Concomitant]

REACTIONS (14)
  - ALANINE AMINOTRANSFERASE INCREASED [None]
  - ASPARTATE AMINOTRANSFERASE INCREASED [None]
  - ATRIAL FIBRILLATION [None]
  - BLOOD ALKALINE PHOSPHATASE INCREASED [None]
  - BLOOD BILIRUBIN INCREASED [None]
  - HYPERKALAEMIA [None]
  - METABOLIC ACIDOSIS [None]
  - NEUROLEPTIC MALIGNANT SYNDROME [None]
  - PANCREATITIS [None]
  - PULMONARY OEDEMA [None]
  - RENAL FAILURE [None]
  - STREPTOCOCCAL INFECTION [None]
  - TROPONIN INCREASED [None]
  - URINE COLOUR ABNORMAL [None]
